FAERS Safety Report 23778576 (Version 1)
Quarter: 2024Q2

REPORT INFORMATION
  Report Type: Spontaneous
  Country: ZA (occurrence: None)
  Receive Date: 20240424
  Receipt Date: 20240424
  Transmission Date: 20240715
  Serious: Yes (Hospitalization)
  Sender: FDA-Public Use
  Company Number: 2024A093393

PATIENT
  Age: 73 Year
  Sex: Female

DRUGS (8)
  1. BUDESONIDE\FORMOTEROL [Suspect]
     Active Substance: BUDESONIDE\FORMOTEROL
     Indication: Asthma
     Dosage: 120 UG COMPLETE DOSE UNKNOWN AND FREQUENCY UNKNOWN UNKNOWN
     Route: 055
  2. FLUTICASONE PROPIONATE\SALMETEROL XINAFOATE [Concomitant]
     Active Substance: FLUTICASONE PROPIONATE\SALMETEROL XINAFOATE
     Indication: Asthma
     Dosage: 25250.0UG UNKNOWN
     Route: 048
  3. ATORVASTATIN [Concomitant]
     Active Substance: ATORVASTATIN
     Indication: Blood cholesterol abnormal
     Dosage: 20.0MG UNKNOWN
     Route: 048
  4. MONTELUKAST SODIUM [Concomitant]
     Active Substance: MONTELUKAST SODIUM
     Indication: Asthma
     Dosage: 10.0MG UNKNOWN
     Route: 048
  5. ETIFOXINE [Concomitant]
     Active Substance: ETIFOXINE
     Indication: Depression
     Dosage: 50.0MG UNKNOWN
     Route: 048
  6. VESICARE [Concomitant]
     Active Substance: SOLIFENACIN SUCCINATE
     Indication: Urinary incontinence
     Dosage: 5.0MG UNKNOWN
     Route: 048
  7. ANTIVAN [Concomitant]
     Indication: Anxiety
     Dosage: 1.0MG UNKNOWN
     Route: 048
  8. ZOLPIDEM TARTRATE [Concomitant]
     Active Substance: ZOLPIDEM TARTRATE
     Indication: Sleep disorder
     Dosage: 10.0MG UNKNOWN
     Route: 048

REACTIONS (3)
  - Chest pain [Unknown]
  - Abdominal pain upper [Unknown]
  - Cardiac disorder [Unknown]
